FAERS Safety Report 20830465 (Version 1)
Quarter: 2022Q2

REPORT INFORMATION
  Report Type: Spontaneous
  Country: RU (occurrence: RU)
  Receive Date: 20220514
  Receipt Date: 20220514
  Transmission Date: 20220721
  Serious: Yes (Death, Other)
  Sender: FDA-Public Use
  Company Number: RU-BAXTER-2022BAX009882

PATIENT
  Sex: Male

DRUGS (1)
  1. SUPRANE [Suspect]
     Active Substance: DESFLURANE
     Indication: Product used for unknown indication
     Dosage: UNK
     Route: 065

REACTIONS (5)
  - Aortic thrombosis [Fatal]
  - Necrosis [Unknown]
  - Anuria [Unknown]
  - Pyrexia [Unknown]
  - Hypercapnia [Unknown]

NARRATIVE: CASE EVENT DATE: 20220401
